FAERS Safety Report 7256447-1 (Version None)
Quarter: 2011Q1

REPORT INFORMATION
  Report Type: 
  Country: None (occurrence: None)
  Receive Date: 20110129
  Receipt Date: 20100803
  Transmission Date: 20110831
  Serious: No
  Sender: FDA-Public Use
  Company Number: US-ABBOTT-10P-163-0661844-00

PATIENT
  Sex: Female
  Weight: 66.738 kg

DRUGS (8)
  1. HUMIRA [Suspect]
     Indication: CROHN'S DISEASE
     Dates: start: 20100201, end: 20100726
  2. HUMIRA [Suspect]
     Dates: start: 20100726
  3. FOSAMAX [Concomitant]
     Indication: PRODUCT USED FOR UNKNOWN INDICATION
  4. PREDNISONE [Concomitant]
     Indication: PRODUCT USED FOR UNKNOWN INDICATION
  5. VESICARE [Concomitant]
     Indication: PRODUCT USED FOR UNKNOWN INDICATION
     Dates: start: 20091101
  6. CIPRO [Concomitant]
     Indication: PRODUCT USED FOR UNKNOWN INDICATION
  7. DEMEROL [Concomitant]
     Indication: PRODUCT USED FOR UNKNOWN INDICATION
     Dosage: 50-100 PO PRN
  8. PENTASA [Concomitant]
     Indication: PRODUCT USED FOR UNKNOWN INDICATION
     Dosage: FORM STRENGTH 500MG, UNIT DOSE 1000, 4 IN 1 DAY

REACTIONS (1)
  - FREQUENT BOWEL MOVEMENTS [None]
